FAERS Safety Report 14369515 (Version 2)
Quarter: 2018Q2

REPORT INFORMATION
  Report Type: Report from Study
  Country: None (occurrence: BR)
  Receive Date: 20180110
  Receipt Date: 20180402
  Transmission Date: 20180711
  Serious: Yes (Hospitalization, Other)
  Sender: FDA-Public Use
  Company Number: BR-ABBVIE-18K-020-2215426-00

PATIENT
  Age: 43 Year
  Sex: Female
  Weight: 74 kg

DRUGS (1)
  1. HUMIRA [Suspect]
     Active Substance: ADALIMUMAB
     Indication: ANKYLOSING SPONDYLITIS
     Route: 058
     Dates: start: 20161004, end: 20171118

REACTIONS (8)
  - Dyspnoea [Recovering/Resolving]
  - Flank pain [Recovering/Resolving]
  - Chest pain [Recovering/Resolving]
  - Hydronephrosis [Not Recovered/Not Resolved]
  - Mitral valve incompetence [Recovering/Resolving]
  - Gastric infection [Recovering/Resolving]
  - Urinary tract infection [Unknown]
  - Spinal pain [Not Recovered/Not Resolved]

NARRATIVE: CASE EVENT DATE: 201712
